FAERS Safety Report 24398883 (Version 2)
Quarter: 2024Q4

REPORT INFORMATION
  Report Type: Spontaneous
  Country: DE (occurrence: DE)
  Receive Date: 20241004
  Receipt Date: 20241107
  Transmission Date: 20250115
  Serious: Yes (Hospitalization, Other)
  Sender: SANDOZ
  Company Number: DE-GLAXOSMITHKLINE-DE2024EME116758

PATIENT
  Age: 17 Year
  Sex: Female
  Weight: 63 kg

DRUGS (6)
  1. BENLYSTA [Suspect]
     Active Substance: BELIMUMAB
     Indication: Product used for unknown indication
     Dosage: UNK
     Route: 042
  2. ETANERCEPT [Suspect]
     Active Substance: ETANERCEPT
     Indication: Arthropathy
     Dosage: UNK
     Route: 065
  3. HYDROXYCHLOROQUINE [Concomitant]
     Active Substance: HYDROXYCHLOROQUINE
     Indication: Product used for unknown indication
     Dosage: 200 MG, QD
     Route: 065
  4. MADELEINE [Concomitant]
     Dosage: 500 MG, QD (1 X 500 MG)
     Route: 065
  5. MADELEINE [Concomitant]
     Indication: Product used for unknown indication
     Dosage: 500 MG, QD (2 X 500 MG)
     Route: 065
  6. MYCOPHENOLATE MOFETIL [Concomitant]
     Active Substance: MYCOPHENOLATE MOFETIL
     Indication: Systemic lupus erythematosus
     Dosage: UNK
     Route: 065

REACTIONS (9)
  - Mixed connective tissue disease [Unknown]
  - Anaphylactic shock [Recovered/Resolved]
  - Conjunctival hyperaemia [Unknown]
  - Flushing [Recovering/Resolving]
  - Blood pressure decreased [Recovering/Resolving]
  - Hypersensitivity [Recovering/Resolving]
  - Urticaria [Recovering/Resolving]
  - Drug ineffective [Unknown]
  - Expired product administered [Unknown]
